FAERS Safety Report 10027028 (Version 4)
Quarter: 2014Q2

REPORT INFORMATION
  Report Type: Report from Study
  Country: US (occurrence: US)
  Receive Date: 20140321
  Receipt Date: 20140604
  Transmission Date: 20141212
  Serious: Yes (Hospitalization, Other)
  Sender: FDA-Public Use
  Company Number: PHEH2014US005162

PATIENT
  Age: 60 Year
  Sex: Female
  Weight: 90.7 kg

DRUGS (15)
  1. GILENYA [Suspect]
     Indication: MULTIPLE SCLEROSIS
     Dosage: 0.5 MG, DAILY
     Route: 048
     Dates: start: 20111001
  2. COREG [Concomitant]
  3. CELEBREX [Concomitant]
  4. NORVASC [Concomitant]
  5. FEMARA [Concomitant]
  6. TRIAMTERENE/HCTZ [Concomitant]
     Dosage: 37.5/25 MG, DAILY
  7. IBUPROFEN [Concomitant]
  8. LEXAPRO [Concomitant]
  9. MOBIC [Concomitant]
  10. LETROZOLE [Concomitant]
     Dosage: 2.5 MG, DAILY
  11. AMLODIPINE [Concomitant]
     Dosage: 10 MG, BID
  12. CARVEDILOL [Concomitant]
     Dosage: 25 MG, BID
  13. HEPARIN [Concomitant]
     Dosage: 5000 U, Q12H
     Route: 058
  14. LIPITOR [Concomitant]
     Dosage: 20 MG, AT BEDTIME
  15. MIRALAX [Concomitant]
     Indication: CONSTIPATION
     Dosage: 17 G, DAILY

REACTIONS (41)
  - Cerebrovascular accident [Recovered/Resolved with Sequelae]
  - Facial pain [Unknown]
  - Dysarthria [Unknown]
  - Muscular weakness [Unknown]
  - Dyskinesia [Unknown]
  - Neurological symptom [Unknown]
  - Joint swelling [Unknown]
  - Headache [Unknown]
  - Balance disorder [Unknown]
  - Hypoaesthesia [Unknown]
  - Hemiparesis [Unknown]
  - Nuclear magnetic resonance imaging brain abnormal [Unknown]
  - Dizziness [Unknown]
  - Speech disorder [Unknown]
  - Type 2 diabetes mellitus [Unknown]
  - Blood pressure decreased [Unknown]
  - Mitral valve incompetence [Unknown]
  - Tricuspid valve incompetence [Unknown]
  - Aortic valve incompetence [Unknown]
  - Pulmonary valve incompetence [Unknown]
  - Sleep apnoea syndrome [Unknown]
  - Neck pain [Unknown]
  - Central nervous system lesion [Unknown]
  - Glucose tolerance impaired [Unknown]
  - Low density lipoprotein increased [Unknown]
  - High density lipoprotein decreased [Unknown]
  - Blood potassium decreased [Unknown]
  - Optic disc disorder [Unknown]
  - Binocular eye movement disorder [Unknown]
  - Decreased vibratory sense [Unknown]
  - Gait disturbance [Unknown]
  - Musculoskeletal discomfort [Unknown]
  - Peripheral swelling [Unknown]
  - Urinary tract infection bacterial [Unknown]
  - White blood cell count decreased [Unknown]
  - Hypertension [Unknown]
  - Pain [Unknown]
  - Knee deformity [Unknown]
  - Osteoarthritis [Unknown]
  - Gait spastic [Unknown]
  - Weight decreased [Unknown]
